FAERS Safety Report 24428026 (Version 1)
Quarter: 2024Q4

REPORT INFORMATION
  Report Type: Spontaneous
  Country: AU (occurrence: AU)
  Receive Date: 20241011
  Receipt Date: 20241011
  Transmission Date: 20250115
  Serious: Yes (Other)
  Sender: INCYTE
  Company Number: AU-002147023-NVSC2024AU197433

PATIENT

DRUGS (2)
  1. RUXOLITINIB [Suspect]
     Active Substance: RUXOLITINIB
     Indication: Myelofibrosis
     Dosage: UNK
     Route: 065
  2. HYDROXYUREA [Concomitant]
     Active Substance: HYDROXYUREA
     Indication: Product used for unknown indication
     Dosage: UNK
     Route: 065

REACTIONS (14)
  - Haemorrhoids [Unknown]
  - Hypervolaemia [Unknown]
  - Gastrointestinal haemorrhage [Unknown]
  - Ascites [Unknown]
  - Liver disorder [Unknown]
  - Varices oesophageal [Unknown]
  - Portal hypertension [Unknown]
  - Gastritis [Unknown]
  - Anaemia [Unknown]
  - Spleen disorder [Unknown]
  - Therapeutic response decreased [Unknown]
  - Splenomegaly [Recovering/Resolving]
  - Myelofibrosis [Unknown]
  - Malignant neoplasm progression [Unknown]
